FAERS Safety Report 5751684-7 (Version None)
Quarter: 2008Q2

REPORT INFORMATION
  Report Type: 
  Country: None (occurrence: None)
  Receive Date: 20080528
  Receipt Date: 20080523
  Transmission Date: 20081010
  Serious: Yes (Other)
  Sender: FDA-Public Use
  Company Number: PHNU2008DE01893

PATIENT
  Sex: Female

DRUGS (1)
  1. MERIMONO [Suspect]
     Dosage: 2 MG, QD

REACTIONS (2)
  - OTOSCLEROSIS [None]
  - SYSTEMIC LUPUS ERYTHEMATOSUS [None]
